FAERS Safety Report 25006692 (Version 1)
Quarter: 2025Q1

REPORT INFORMATION
  Report Type: Report from Study
  Country: JP (occurrence: JP)
  Receive Date: 20250225
  Receipt Date: 20250225
  Transmission Date: 20250408
  Serious: Yes (Hospitalization, Other)
  Sender: BRISTOL-MYERS SQUIBB COMPANY
  Company Number: JP-BRISTOL-MYERS SQUIBB COMPANY-2025-016002

PATIENT
  Age: 72 Year
  Sex: Male
  Weight: 61.7 kg

DRUGS (2)
  1. OPDIVO [Suspect]
     Active Substance: NIVOLUMAB
     Indication: Transitional cell carcinoma
     Route: 042
     Dates: start: 20230906, end: 20231004
  2. OPDIVO [Suspect]
     Active Substance: NIVOLUMAB
     Route: 042
     Dates: start: 20231018, end: 20231115

REACTIONS (7)
  - Cardiac failure [Unknown]
  - Nephrogenic anaemia [Unknown]
  - Cardiac failure congestive [Unknown]
  - Glomerulonephritis rapidly progressive [Recovering/Resolving]
  - Temporomandibular pain and dysfunction syndrome [Unknown]
  - Transitional cell carcinoma recurrent [Unknown]
  - Microcytic anaemia [Unknown]

NARRATIVE: CASE EVENT DATE: 20231206
